FAERS Safety Report 13868981 (Version 3)
Quarter: 2017Q4

REPORT INFORMATION
  Report Type: Report from Study
  Country: US (occurrence: US)
  Receive Date: 20170815
  Receipt Date: 20171219
  Transmission Date: 20180320
  Serious: Yes (Life-Threatening, Hospitalization)
  Sender: FDA-Public Use
  Company Number: US-TESARO, INC-US-2017TSO01980

PATIENT

DRUGS (3)
  1. ZEJULA [Suspect]
     Active Substance: NIRAPARIB
     Dosage: UNK
  2. ZEJULA [Suspect]
     Active Substance: NIRAPARIB
     Dosage: UNK
  3. ZEJULA [Suspect]
     Active Substance: NIRAPARIB
     Indication: OVARIAN CANCER
     Dosage: 300 MG, QD
     Route: 048
     Dates: start: 20170717, end: 20170802

REACTIONS (6)
  - Haemorrhage [Unknown]
  - Decreased appetite [Not Recovered/Not Resolved]
  - Contusion [Unknown]
  - Fatigue [Not Recovered/Not Resolved]
  - Thrombocytopenia [Unknown]
  - Hospice care [Unknown]

NARRATIVE: CASE EVENT DATE: 2017
